FAERS Safety Report 24578948 (Version 5)
Quarter: 2025Q1

REPORT INFORMATION
  Report Type: Report from Study
  Country: IT (occurrence: IT)
  Receive Date: 20241105
  Receipt Date: 20250106
  Transmission Date: 20250409
  Serious: Yes (Death, Hospitalization, Other)
  Sender: TAKEDA
  Company Number: IT-TAKEDA-2024TUS062742

PATIENT
  Age: 66 Year
  Sex: Male
  Weight: 77 kg

DRUGS (7)
  1. FRUQUINTINIB [Suspect]
     Active Substance: FRUQUINTINIB
     Indication: Colorectal cancer metastatic
     Dosage: 5 MILLIGRAM, QD
     Dates: start: 20240531, end: 20240612
  2. FRUQUINTINIB [Suspect]
     Active Substance: FRUQUINTINIB
  3. FRUQUINTINIB [Suspect]
     Active Substance: FRUQUINTINIB
     Dosage: 4 MILLIGRAM, QD
     Dates: start: 20240705, end: 20240816
  4. FRUQUINTINIB [Suspect]
     Active Substance: FRUQUINTINIB
     Dosage: 3 MILLIGRAM, QD
  5. FRUQUINTINIB [Suspect]
     Active Substance: FRUQUINTINIB
  6. PREGABALIN [Concomitant]
     Active Substance: PREGABALIN
     Indication: Neuropathy peripheral
     Dosage: 225 MILLIGRAM, QD
     Dates: start: 20211020
  7. PANTOPRAZOLE [Concomitant]
     Active Substance: PANTOPRAZOLE
     Indication: Prophylaxis
     Dosage: 40 MILLIGRAM, QD
     Dates: start: 20240619

REACTIONS (6)
  - Colorectal cancer metastatic [Fatal]
  - Large intestinal obstruction [Recovered/Resolved]
  - Asthenia [Unknown]
  - Fatigue [Recovering/Resolving]
  - Depressed mood [Unknown]
  - Oedema [Unknown]

NARRATIVE: CASE EVENT DATE: 20240612
